FAERS Safety Report 24942723 (Version 3)
Quarter: 2025Q4

REPORT INFORMATION
  Report Type: Spontaneous
  Country: US (occurrence: US)
  Receive Date: 20250207
  Receipt Date: 20251106
  Transmission Date: 20260118
  Serious: No
  Sender: SANOFI AVENTIS
  Company Number: US-SA-2025SA037026

PATIENT
  Age: 43 Year
  Sex: Male

DRUGS (11)
  1. DUPIXENT [Suspect]
     Active Substance: DUPILUMAB
     Indication: Dermatitis atopic
     Dosage: 300 MG, QOW
     Route: 058
     Dates: start: 20250204, end: 202507
  2. DUPIXENT [Suspect]
     Active Substance: DUPILUMAB
     Indication: Eczema
  3. CLONAZEPAM [Concomitant]
     Active Substance: CLONAZEPAM
  4. DILTIAZEM [Concomitant]
     Active Substance: DILTIAZEM
  5. FAMCICLOVIR [Concomitant]
     Active Substance: FAMCICLOVIR
  6. FAMOTIDINE [Concomitant]
     Active Substance: FAMOTIDINE
  7. IRON [Concomitant]
     Active Substance: IRON
  8. LOSARTAN POTASSIUM [Concomitant]
     Active Substance: LOSARTAN POTASSIUM
  9. MYFORTIC [Concomitant]
     Active Substance: MYCOPHENOLATE SODIUM
  10. PREDNISONE [Concomitant]
     Active Substance: PREDNISONE
  11. PROGRAF [Concomitant]
     Active Substance: TACROLIMUS

REACTIONS (6)
  - Thermohyperaesthesia [Not Recovered/Not Resolved]
  - Sleep disorder due to a general medical condition [Unknown]
  - Dermatitis atopic [Unknown]
  - Rash [Unknown]
  - Discomfort [Unknown]
  - Pain [Unknown]

NARRATIVE: CASE EVENT DATE: 20250101
